FAERS Safety Report 7117492-X (Version None)
Quarter: 2010Q4

REPORT INFORMATION
  Report Type: 
  Country: None (occurrence: None)
  Receive Date: 20101122
  Receipt Date: 20101115
  Transmission Date: 20110411
  Serious: Yes (Other)
  Sender: FDA-Public Use
  Company Number: US-PFIZER INC-2010150771

PATIENT
  Sex: Male
  Weight: 81.646 kg

DRUGS (9)
  1. PRISTIQ [Suspect]
     Indication: DEPRESSION
     Dosage: 50 MG, 1X/DAY
     Route: 048
  2. DIAZEPAM [Concomitant]
     Dosage: 2 MG, 1X/DAY
  3. ZETIA [Concomitant]
     Dosage: UNK
  4. FLUNISOLIDE [Concomitant]
     Dosage: UNK
     Route: 045
  5. LISINOPRIL [Concomitant]
     Dosage: 10 MG, UNK
  6. NITROGLYCERIN [Concomitant]
     Dosage: FREQUENCY: AS NEEDED,
  7. CRESTOR [Concomitant]
     Dosage: UNK
  8. ZOLPIDEM TARTRATE [Concomitant]
     Dosage: 10 MG, UNK
  9. ASPIRIN [Concomitant]
     Dosage: 325 MG, UNK

REACTIONS (6)
  - CHEST PAIN [None]
  - DEPRESSION [None]
  - DRUG DOSE OMISSION [None]
  - FATIGUE [None]
  - MEMORY IMPAIRMENT [None]
  - TREMOR [None]
